FAERS Safety Report 7157028-0 (Version None)
Quarter: 2010Q4

REPORT INFORMATION
  Report Type: 
  Country: None (occurrence: None)
  Receive Date: 20101214
  Receipt Date: 20100219
  Transmission Date: 20110411
  Serious: Yes (Other)
  Sender: FDA-Public Use
  Company Number: US-ASTRAZENECA-2010SE02765

PATIENT
  Age: 51 Year
  Sex: Male
  Weight: 97.5 kg

DRUGS (11)
  1. CRESTOR [Suspect]
     Indication: HYPERLIPIDAEMIA
     Route: 048
     Dates: start: 20091209, end: 20100106
  2. DIOVAN [Concomitant]
     Indication: HYPERTENSION
     Route: 048
     Dates: start: 20091125
  3. ASPIRIN [Concomitant]
  4. COENZYME Q10 [Concomitant]
  5. RED RICE YEAST [Concomitant]
     Indication: BLOOD CHOLESTEROL INCREASED
     Route: 048
  6. FLAXSEED OIL [Concomitant]
  7. VITAMIN E [Concomitant]
  8. ASCORBIC ACID [Concomitant]
  9. CENTRUM CARDIO MULTIVITAMIN [Concomitant]
  10. BETA-CAROTENE [Concomitant]
  11. GARLIC SUPPLEMENT [Concomitant]

REACTIONS (1)
  - RHABDOMYOLYSIS [None]
